FAERS Safety Report 6768189-7 (Version None)
Quarter: 2010Q2

REPORT INFORMATION
  Report Type: 
  Country: None (occurrence: None)
  Receive Date: 20100614
  Receipt Date: 20100608
  Transmission Date: 20101027
  Serious: Yes (Hospitalization)
  Sender: FDA-Public Use
  Company Number: US-GILEAD-2010-0029694

PATIENT
  Sex: Male

DRUGS (9)
  1. LETAIRIS [Suspect]
     Indication: PULMONARY ARTERIAL HYPERTENSION
     Route: 048
  2. ASPIRIN [Concomitant]
  3. LASIX [Concomitant]
  4. GLIPIZIDE [Concomitant]
  5. METFORMIN HCL [Concomitant]
  6. BUSPAR [Concomitant]
  7. GABAPENTIN [Concomitant]
  8. ZOCOR [Concomitant]
  9. VITAMIN D [Concomitant]

REACTIONS (1)
  - PNEUMONIA [None]
